FAERS Safety Report 21822982 (Version 2)
Quarter: 2024Q1

REPORT INFORMATION
  Report Type: Spontaneous
  Country: US (occurrence: US)
  Receive Date: 20230105
  Receipt Date: 20240104
  Transmission Date: 20240410
  Serious: No
  Sender: FDA-Public Use
  Company Number: US-AMNEAL PHARMACEUTICALS-2022-AMRX-00718

PATIENT
  Age: 41 Year
  Sex: Female
  Weight: 76.2 kg

DRUGS (8)
  1. ACTIVELLA [Suspect]
     Active Substance: ESTRADIOL\NORETHINDRONE ACETATE
     Indication: Uterine leiomyoma
     Dosage: 1 DOSAGE FORM, 1 /DAY
     Route: 048
     Dates: start: 20190925, end: 20200826
  2. ACTIVELLA [Suspect]
     Active Substance: ESTRADIOL\NORETHINDRONE ACETATE
     Dosage: 1 DOSAGE FORM, 1 /DAY
     Route: 048
     Dates: start: 20200826, end: 20220207
  3. ELAGOLIX [Suspect]
     Active Substance: ELAGOLIX
     Indication: Uterine leiomyoma
     Dosage: 1 DOSAGE FORM, DAILY, PM DOSE
     Route: 048
     Dates: start: 20200826, end: 20220207
  4. MOTRIN [Concomitant]
     Active Substance: IBUPROFEN
     Indication: Pelvic pain
     Dosage: 1 DOSAGE FORM, AS NEEDED
     Route: 048
     Dates: start: 2012
  5. VITAMIN D NOS [Concomitant]
     Active Substance: VITAMIN D NOS
     Indication: Supplementation therapy
     Dosage: 1 DOSAGE FORM, 1 /DAY
     Route: 048
     Dates: start: 20190422
  6. VITAMINS [Concomitant]
     Active Substance: VITAMINS
     Indication: Supplementation therapy
     Dosage: 1 TABLETS, DAILY
     Route: 048
     Dates: start: 20190422
  7. HYDROCHLOROTHIAZIDE [Concomitant]
     Active Substance: HYDROCHLOROTHIAZIDE
     Indication: Hypertension
     Dosage: 1 DOSAGE FORM, 1 /DAY
     Route: 048
     Dates: start: 2007
  8. LEVOTHYROXINE [Concomitant]
     Active Substance: LEVOTHYROXINE
     Indication: Autoimmune thyroiditis
     Dosage: 1 DOSAGE FORM, 1 /DAY
     Route: 048
     Dates: start: 20200708

REACTIONS (1)
  - Bone density decreased [Recovered/Resolved]

NARRATIVE: CASE EVENT DATE: 20220112
